FAERS Safety Report 6121315-5 (Version None)
Quarter: 2009Q1

REPORT INFORMATION
  Report Type: 
  Country: None (occurrence: None)
  Receive Date: 20090317
  Receipt Date: 20090313
  Transmission Date: 20090719
  Serious: Yes (Other)
  Sender: FDA-Public Use
  Company Number: GB-RB-011751-09

PATIENT
  Age: 22 Year
  Sex: Female

DRUGS (1)
  1. SUBUTEX [Suspect]
     Route: 060
     Dates: start: 20090101

REACTIONS (1)
  - PSYCHOTIC DISORDER [None]
